FAERS Safety Report 19870233 (Version 1)
Quarter: 2021Q3

REPORT INFORMATION
  Report Type: Report from Study
  Country: None (occurrence: US)
  Receive Date: 20210923
  Receipt Date: 20210923
  Transmission Date: 20211014
  Serious: Yes (Hospitalization, Other)
  Sender: FDA-Public Use
  Company Number: US-ABBVIE-21K-163-4026640-00

PATIENT
  Age: 79 Year
  Sex: Female
  Weight: 61.29 kg

DRUGS (8)
  1. ATORVASTATIN [Concomitant]
     Active Substance: ATORVASTATIN
     Indication: BLOOD CHOLESTEROL
     Route: 065
  2. LEVOTHYROXINE. [Concomitant]
     Active Substance: LEVOTHYROXINE
     Indication: THYROID DISORDER
     Route: 065
  3. METHOTREXATE. [Concomitant]
     Active Substance: METHOTREXATE
     Indication: UVEITIS
  4. RALOXIFENE. [Concomitant]
     Active Substance: RALOXIFENE
     Indication: BREAST CANCER
  5. HUMIRA [Suspect]
     Active Substance: ADALIMUMAB
     Route: 058
     Dates: start: 20210704
  6. METHOTREXATE. [Concomitant]
     Active Substance: METHOTREXATE
     Indication: RETINITIS
     Route: 065
  7. HUMIRA [Suspect]
     Active Substance: ADALIMUMAB
     Indication: UVEITIS
     Dosage: CITRATE FREE
     Route: 058
     Dates: start: 20210411, end: 2021
  8. RALOXIFENE. [Concomitant]
     Active Substance: RALOXIFENE
     Indication: BONE DISORDER
     Route: 065

REACTIONS (8)
  - Pain of skin [Unknown]
  - Papule [Unknown]
  - Squamous cell carcinoma of skin [Recovered/Resolved]
  - Fluid retention [Unknown]
  - Peripheral swelling [Not Recovered/Not Resolved]
  - Actinic keratosis [Not Recovered/Not Resolved]
  - Fatigue [Unknown]
  - Peripheral swelling [Not Recovered/Not Resolved]

NARRATIVE: CASE EVENT DATE: 2021
